FAERS Safety Report 5871108-9 (Version None)
Quarter: 2008Q3

REPORT INFORMATION
  Report Type: 
  Country: None (occurrence: None)
  Receive Date: 20080904
  Receipt Date: 20080825
  Transmission Date: 20090109
  Serious: Yes (Life-Threatening, Other)
  Sender: FDA-Public Use
  Company Number: GB-PFIZER INC-2006129766

PATIENT
  Age: 59 Year
  Sex: Female
  Weight: 70 kg

DRUGS (4)
  1. SOLU-MEDROL [Suspect]
     Indication: ALOPECIA
     Route: 042
     Dates: start: 20061004, end: 20061004
  2. LEVOTHYROXINE SODIUM [Concomitant]
     Indication: HYPOTHYROIDISM
     Route: 048
  3. ESTRADERM [Concomitant]
     Indication: HORMONE REPLACEMENT THERAPY
     Route: 062
  4. FISH OIL [Concomitant]
     Dosage: DAILY DOSE:1000MG-TEXT:DAILY
     Route: 048

REACTIONS (6)
  - ANAPHYLACTOID REACTION [None]
  - BALANCE DISORDER [None]
  - CONFUSIONAL STATE [None]
  - DIZZINESS [None]
  - DYSGEUSIA [None]
  - TACHYCARDIA [None]
